FAERS Safety Report 8328823-7 (Version None)
Quarter: 2012Q2

REPORT INFORMATION
  Report Type: 
  Country: None (occurrence: None)
  Receive Date: 20120502
  Receipt Date: 20120423
  Transmission Date: 20120825
  Serious: Yes (Other)
  Sender: FDA-Public Use
  Company Number: US-AMGEN-USASP2012025446

PATIENT

DRUGS (1)
  1. ENBREL [Suspect]
     Dosage: 50 MG, QWK
     Route: 064
     Dates: start: 20081215, end: 20101201

REACTIONS (4)
  - NEONATAL HYPOXIA [None]
  - NEONATAL ASPIRATION [None]
  - POSTMATURE BABY [None]
  - MATERNAL EXPOSURE BEFORE PREGNANCY [None]
